FAERS Safety Report 12959292 (Version 1)
Quarter: 2016Q4

REPORT INFORMATION
  Report Type: Spontaneous
  Country: GB (occurrence: GB)
  Receive Date: 20161121
  Receipt Date: 20161121
  Transmission Date: 20170207
  Serious: Yes (Other)
  Sender: FDA-Public Use
  Company Number: GB-AMGEN-GBRSP2016162851

PATIENT
  Age: 73 Year
  Sex: Female

DRUGS (9)
  1. PROLIA [Suspect]
     Active Substance: DENOSUMAB
     Indication: OSTEOPOROSIS
     Dosage: 60 MG, Q6MO
     Route: 058
  2. AMLODIPINE [Concomitant]
     Active Substance: AMLODIPINE BESYLATE
  3. CREON [Concomitant]
     Active Substance: PANCRELIPASE AMYLASE\PANCRELIPASE LIPASE\PANCRELIPASE PROTEASE
  4. BISOPROLOL [Concomitant]
     Active Substance: BISOPROLOL
  5. WARFARIN [Concomitant]
     Active Substance: WARFARIN
  6. FERROUS SULFATE. [Concomitant]
     Active Substance: FERROUS SULFATE
  7. CITALOPRAM [Concomitant]
     Active Substance: CITALOPRAM HYDROBROMIDE
  8. CALCIUM [Concomitant]
     Active Substance: CALCIUM
     Dosage: 1200 MG, QD
  9. COLECALCIFEROL [Concomitant]
     Active Substance: CHOLECALCIFEROL
     Dosage: 800 UNIT, QD

REACTIONS (2)
  - Hypocalcaemia [Unknown]
  - Vitamin D deficiency [Unknown]
